FAERS Safety Report 15742910 (Version 2)
Quarter: 2019Q2

REPORT INFORMATION
  Report Type: Spontaneous
  Country: NL (occurrence: NL)
  Receive Date: 20181220
  Receipt Date: 20190516
  Transmission Date: 20190711
  Serious: Yes (Hospitalization, Other)
  Sender: FDA-Public Use
  Company Number: NL-MYLANLABS-2018M1094474

PATIENT
  Age: 20 Year
  Sex: Male

DRUGS (8)
  1. MORPHINE [Suspect]
     Active Substance: MORPHINE
     Indication: PRODUCT USED FOR UNKNOWN INDICATION
     Dosage: 0.06 MILLIGRAM/KILOGRAM, QH
     Route: 065
  2. NOREPINEPHRINE. [Suspect]
     Active Substance: NOREPINEPHRINE
     Indication: CEREBRAL HYPOPERFUSION
     Dosage: 0.1-1.4 MG/H
     Route: 065
  3. PHENYTOIN. [Suspect]
     Active Substance: PHENYTOIN
     Indication: TONIC CLONIC MOVEMENTS
     Dosage: UNK
  4. PROPOFOL. [Suspect]
     Active Substance: PROPOFOL
     Dosage: 5.14 MG/(KG.H), AFTER 2 HOURS
  5. PROPOFOL. [Suspect]
     Active Substance: PROPOFOL
     Dosage: 4.3 MG/(KG.H), DAY 2 OF INFUSION
  6. MIDAZOLAM [Suspect]
     Active Substance: MIDAZOLAM HYDROCHLORIDE
     Indication: SEDATION
     Dosage: 0.6 MILLIGRAM/KILOGRAM, QH
     Route: 065
  7. MIDAZOLAM [Suspect]
     Active Substance: MIDAZOLAM HYDROCHLORIDE
     Indication: TONIC CLONIC MOVEMENTS
  8. PROPOFOL. [Suspect]
     Active Substance: PROPOFOL
     Indication: SEDATION
     Dosage: 7.14 MG/(KG.H)

REACTIONS (7)
  - Oedema [Unknown]
  - Contusion [Unknown]
  - Unresponsive to stimuli [Recovered/Resolved]
  - Mydriasis [Unknown]
  - Electrocardiogram abnormal [Recovered/Resolved]
  - Myocardial necrosis marker increased [Recovered/Resolved]
  - Propofol infusion syndrome [Recovered/Resolved]
